FAERS Safety Report 14541714 (Version 3)
Quarter: 2018Q3

REPORT INFORMATION
  Report Type: Spontaneous
  Country: DE (occurrence: DE)
  Receive Date: 20180216
  Receipt Date: 20180926
  Transmission Date: 20181010
  Serious: Yes (Life-Threatening, Hospitalization, Other)
  Sender: FDA-Public Use
  Company Number: DE-TEVA-2018-DE-858259

PATIENT
  Age: 78 Year
  Sex: Female

DRUGS (35)
  1. METAMIZOLE [Interacting]
     Active Substance: METAMIZOLE
     Dosage: DOSAGE FORM: UNSPECIFIED, 500?1000 MG
     Route: 048
     Dates: start: 20140502, end: 20140516
  2. PIPAMPERON [Suspect]
     Active Substance: PIPAMPERONE HYDROCHLORIDE
     Indication: PRODUCT USED FOR UNKNOWN INDICATION
     Dosage: 20 MILLIGRAM DAILY; 20 MG, UNK
     Route: 048
     Dates: start: 20140528, end: 20140528
  3. ABILIFY [Suspect]
     Active Substance: ARIPIPRAZOLE
     Dosage: 2.5 MG, UNK
     Route: 048
     Dates: start: 20140508, end: 20140514
  4. RESONIUM [Concomitant]
     Active Substance: SODIUM POLYSTYRENE SULFONATE
     Indication: PRODUCT USED FOR UNKNOWN INDICATION
     Dosage: DOSAGE FORM: UNSPECIFIED, 2 TABLE SPOON
     Route: 048
     Dates: start: 20140528
  5. ABILIFY [Suspect]
     Active Substance: ARIPIPRAZOLE
     Indication: PRODUCT USED FOR UNKNOWN INDICATION
     Dosage: 5 MG, UNK
     Route: 048
     Dates: start: 20140515, end: 20140520
  6. PREDNISOLON [Concomitant]
     Active Substance: PREDNISOLONE
     Indication: PRODUCT USED FOR UNKNOWN INDICATION
     Dosage: DOSAGE FORM: UNSPECIFIED
     Route: 048
     Dates: start: 20140528
  7. METAMIZOLE [Interacting]
     Active Substance: METAMIZOLE
     Dosage: 500 MG, EVERY DAY
     Route: 048
     Dates: start: 20140530
  8. METAMIZOLE [Interacting]
     Active Substance: METAMIZOLE
     Dosage: DAILY DOSE: 500 MG MILLIGRAM(S) EVERY DAY
     Route: 048
     Dates: start: 20140522, end: 20140522
  9. METAMIZOLE [Interacting]
     Active Substance: METAMIZOLE
     Dosage: 500 MG MILLIGRAM(S) EVERY DAY
     Route: 048
     Dates: start: 20140526, end: 20140528
  10. PIPAMPERON [Suspect]
     Active Substance: PIPAMPERONE HYDROCHLORIDE
     Dosage: 20 MG, UNK
     Route: 048
     Dates: start: 20140508, end: 20140509
  11. PIPAMPERON [Suspect]
     Active Substance: PIPAMPERONE HYDROCHLORIDE
     Dosage: 40 MG, UNK
     Route: 048
     Dates: start: 20140510, end: 20140513
  12. DIAZEPAM. [Suspect]
     Active Substance: DIAZEPAM
     Indication: RESTLESSNESS
     Dosage: DOSAGE FORM: UNSPECIFIED, IN NIGHTS 26/27?MAY?2014 AND 27/28?MAY?2014 IN TOTAL 30 MG IN 26 HOURS
     Route: 030
  13. PIPAMPERON [Suspect]
     Active Substance: PIPAMPERONE HYDROCHLORIDE
     Dosage: 60 MG, UNK
     Route: 048
     Dates: start: 20140515, end: 20140524
  14. SIMVASTATIN. [Concomitant]
     Active Substance: SIMVASTATIN
     Indication: PRODUCT USED FOR UNKNOWN INDICATION
     Dosage: DAILY DOSE: 10 MG MILLIGRAM(S) EVERY DAY
     Route: 048
     Dates: start: 20140201
  15. OPHTALMIN N [Concomitant]
     Indication: PRODUCT USED FOR UNKNOWN INDICATION
     Dosage: UNK 2X1 SINCE WEEKS
     Route: 065
  16. PANTOPRAZOL [Concomitant]
     Active Substance: PANTOPRAZOLE SODIUM
     Indication: PRODUCT USED FOR UNKNOWN INDICATION
     Dosage: DAILY DOSE: 40 MG MILLIGRAM(S) EVERY DAY
     Route: 048
  17. DIAZEPAM. [Interacting]
     Active Substance: DIAZEPAM
     Dosage: DOSAGE FORM: UNSPECIFIED, SINCE YEARS
     Route: 048
     Dates: start: 20140526, end: 20140528
  18. METAMIZOLE [Interacting]
     Active Substance: METAMIZOLE
     Dosage: DOSAGE FORM: UNSPECIFIED, 500 ?1000 MG
     Route: 048
     Dates: start: 20140517, end: 20140517
  19. MIRTAZAPINE. [Interacting]
     Active Substance: MIRTAZAPINE
     Indication: PRODUCT USED FOR UNKNOWN INDICATION
     Dosage: 30 MG, UNK
     Route: 048
  20. LISINOPRIL. [Interacting]
     Active Substance: LISINOPRIL
     Indication: PRODUCT USED FOR UNKNOWN INDICATION
     Route: 048
     Dates: start: 20140520, end: 20140520
  21. PIPAMPERON [Suspect]
     Active Substance: PIPAMPERONE HYDROCHLORIDE
     Dosage: 80 MG, UNK
     Route: 048
     Dates: start: 20140525, end: 20140526
  22. FOLSAEURE [Concomitant]
     Active Substance: FOLIC ACID
     Indication: PRODUCT USED FOR UNKNOWN INDICATION
     Dosage: DAILY DOSE: 5 MG MILLIGRAM(S) EVERY DAY
     Route: 048
     Dates: start: 20140502
  23. INSULIN [Concomitant]
     Active Substance: INSULIN NOS
     Indication: PRODUCT USED FOR UNKNOWN INDICATION
     Dosage: DAILY DOSE: 60 IU INTERNATIONAL UNIT(S) EVERY DAY
     Route: 058
  24. VENLAFAXIN [Concomitant]
     Active Substance: VENLAFAXINE HYDROCHLORIDE
     Indication: PRODUCT USED FOR UNKNOWN INDICATION
     Dosage: 30 MG, UNK
     Route: 048
     Dates: start: 2012
  25. CLOPIDOGREL [Concomitant]
     Active Substance: CLOPIDOGREL BISULFATE
     Indication: PRODUCT USED FOR UNKNOWN INDICATION
     Dosage: DAILY DOSE: 75 MG MILLIGRAM(S) EVERY DAY
     Route: 048
     Dates: start: 2011
  26. METAMIZOLE [Interacting]
     Active Substance: METAMIZOLE
     Dosage: DAILY DOSE: 1000 MG MILLIGRAM(S) EVERY DAY
     Route: 048
     Dates: start: 20140520, end: 20140521
  27. METAMIZOLE [Interacting]
     Active Substance: METAMIZOLE
     Dosage: 1000 MG MILLIGRAM(S) EVERY DAY
     Route: 048
     Dates: start: 20140523, end: 20140525
  28. LISINOPRIL. [Interacting]
     Active Substance: LISINOPRIL
     Dosage: 2.5 UNK, UNK
     Route: 048
     Dates: start: 20140524
  29. PIPAMPERON [Suspect]
     Active Substance: PIPAMPERONE HYDROCHLORIDE
     Dosage: 120 MG, UNK
     Route: 048
     Dates: start: 20140527, end: 20140527
  30. STILNOX [Suspect]
     Active Substance: ZOLPIDEM TARTRATE
     Indication: PRODUCT USED FOR UNKNOWN INDICATION
     Dosage: DOSAGE FORM: UNSPECIFIED
     Route: 048
     Dates: start: 20140527
  31. MACROGOL [Concomitant]
     Active Substance: POLYETHYLENE GLYCOLS
     Indication: PRODUCT USED FOR UNKNOWN INDICATION
     Dosage: DAILY DOSE: 1 DF DOSAGE FORM EVERY DAY
     Route: 048
     Dates: start: 2011
  32. METAMIZOLE [Interacting]
     Active Substance: METAMIZOLE
     Indication: PRODUCT USED FOR UNKNOWN INDICATION
     Dosage: DAILY DOSE: 2000 MG MILLIGRAM(S) EVERY DAY
     Route: 048
     Dates: start: 20140518, end: 20140519
  33. DUROGESIC [Suspect]
     Active Substance: FENTANYL
     Indication: PRODUCT USED FOR UNKNOWN INDICATION
     Dosage: DAILY DOSE: 75 ?G MICROGRAM(S) EVERY 3 DAY
     Route: 062
     Dates: start: 2012
  34. FORMOTEROL [Concomitant]
     Active Substance: FORMOTEROL
     Indication: PRODUCT USED FOR UNKNOWN INDICATION
     Dosage: DAILY DOSE: 1 DF DOSAGE FORM EVERY DAY
     Route: 065
     Dates: start: 201312
  35. AMLODIPIN [Concomitant]
     Active Substance: AMLODIPINE BESYLATE
     Indication: PRODUCT USED FOR UNKNOWN INDICATION
     Dosage: DAILY DOSE: 10 MG MILLIGRAM(S) EVERY DAY
     Route: 048
     Dates: start: 2011

REACTIONS (14)
  - Dysarthria [Unknown]
  - Left ventricular hypertrophy [Unknown]
  - Fall [Unknown]
  - Facial nerve disorder [Unknown]
  - Prescribed underdose [Unknown]
  - Rash [Unknown]
  - Diarrhoea [Unknown]
  - Syncope [Recovered/Resolved]
  - Hypokalaemia [Unknown]
  - Myoclonus [Unknown]
  - Loss of consciousness [Recovered/Resolved]
  - Restlessness [Unknown]
  - Pancytopenia [Recovered/Resolved]
  - Drug interaction [Unknown]

NARRATIVE: CASE EVENT DATE: 20140519
